FAERS Safety Report 8459636-3 (Version None)
Quarter: 2012Q2

REPORT INFORMATION
  Report Type: 
  Country: None (occurrence: None)
  Receive Date: 20120622
  Receipt Date: 20120423
  Transmission Date: 20120825
  Serious: Yes (Other)
  Sender: FDA-Public Use
  Company Number: TR-GLAXOSMITHKLINE-B0798533A

PATIENT
  Age: 14 Year
  Sex: Female

DRUGS (2)
  1. CHEMOTHERAPY [Concomitant]
     Indication: ACUTE LYMPHOCYTIC LEUKAEMIA
  2. ACYCLOVIR [Suspect]
     Indication: VARICELLA
     Route: 042

REACTIONS (4)
  - CATHETER SITE PAIN [None]
  - ERYTHEMA [None]
  - EXTRAVASATION [None]
  - DERMATITIS BULLOUS [None]
